FAERS Safety Report 23734244 (Version 1)
Quarter: 2024Q2

REPORT INFORMATION
  Report Type: Spontaneous
  Country: US (occurrence: None)
  Receive Date: 20240412
  Receipt Date: 20240412
  Transmission Date: 20240715
  Serious: Yes (Hospitalization)
  Sender: FDA-Public Use
  Company Number: US-MDD US Operations-MDD202403-000790

PATIENT
  Age: 77 Year
  Sex: Male

DRUGS (12)
  1. APOKYN [Suspect]
     Active Substance: APOMORPHINE HYDROCHLORIDE
     Indication: Parkinson^s disease
     Dosage: TITRATE BY 0.1 ML EVERY FEW DAYS UP TO EFFECTIVE MAXIMUM RECOMMENDED DOSE OF 0.6 ML?(3 ML CARTRIDGE
     Route: 058
     Dates: start: 20240226
  2. FUROSEMIDE [Concomitant]
     Active Substance: FUROSEMIDE
     Dosage: NOT PROVIDED
  3. PRAMIPEXOLE DIHYDROCHLORIDE [Concomitant]
     Active Substance: PRAMIPEXOLE DIHYDROCHLORIDE
     Dosage: NOT PROVIDED
  4. NUPLAZID [Concomitant]
     Active Substance: PIMAVANSERIN TARTRATE
     Dosage: NOT PROVIDED
  5. CARBIDOPA\ENTACAPONE\LEVODOPA [Concomitant]
     Active Substance: CARBIDOPA\ENTACAPONE\LEVODOPA
     Dosage: NOT PROVIDED
  6. ASPIRIN [Concomitant]
     Active Substance: ASPIRIN
     Dosage: NOT PROVIDED
  7. RYTARY [Concomitant]
     Active Substance: CARBIDOPA\LEVODOPA
     Dosage: NOT PROVIDED
  8. TAMSULOSIN HYDROCHLORIDE [Concomitant]
     Active Substance: TAMSULOSIN HYDROCHLORIDE
     Dosage: NOT PROVIDED
  9. ROSUVASTATIN CALCIUM [Concomitant]
     Active Substance: ROSUVASTATIN CALCIUM
     Dosage: NOT PROVIDED
  10. PIOGLITAZONE HYDROCHLORIDE [Concomitant]
     Active Substance: PIOGLITAZONE HYDROCHLORIDE
     Dosage: NOT PROVIDED
  11. METFORMIN [Concomitant]
     Active Substance: METFORMIN HYDROCHLORIDE
     Dosage: GASTRIC
  12. RISPERIDONE [Concomitant]
     Active Substance: RISPERIDONE
     Dosage: NOT PROVIDED

REACTIONS (4)
  - Intestinal obstruction [Recovered/Resolved]
  - Hallucination [Recovered/Resolved]
  - Yawning [Unknown]
  - Somnolence [Unknown]

NARRATIVE: CASE EVENT DATE: 20240226
